FAERS Safety Report 10866136 (Version 1)
Quarter: 2015Q1

REPORT INFORMATION
  Report Type: Spontaneous
  Country: US (occurrence: None)
  Receive Date: 20150219
  Receipt Date: 20150219
  Transmission Date: 20150721
  Serious: Yes (Other)
  Sender: FDA-Public Use
  Company Number: 001869349A

PATIENT
  Age: 36 Year
  Sex: Male

DRUGS (4)
  1. PROACTIV PLUS PORE TARGETING TREATMENT [Suspect]
     Active Substance: BENZOYL PEROXIDE
     Indication: ACNE
     Dosage: TWICE DAILY, DERMAL
     Dates: start: 20140826, end: 20141215
  2. MULTIVITAMIN [Concomitant]
     Active Substance: VITAMINS
  3. PROACTIVPLUS SKIN SMOOTHING EXFOLIATOR [Suspect]
     Active Substance: BENZOYL PEROXIDE
     Indication: ACNE
     Dosage: TWICE DAILY, DERMAL
     Dates: start: 20140826, end: 20141215
  4. PROACTIV PLUS PORE TARGETING TREATMENT [Suspect]
     Active Substance: BENZOYL PEROXIDE
     Indication: ACNE
     Dosage: TWICE DAILY, DERMAL
     Dates: start: 20140826, end: 20141215

REACTIONS (7)
  - Skin irritation [None]
  - Staphylococcal pharyngitis [None]
  - Nasal disorder [None]
  - Staphylococcal skin infection [None]
  - Staphylococcal infection [None]
  - Impetigo [None]
  - Sinus disorder [None]

NARRATIVE: CASE EVENT DATE: 20141215
